FAERS Safety Report 5210700-1 (Version None)
Quarter: 2007Q1

REPORT INFORMATION
  Report Type: 
  Country: None (occurrence: None)
  Receive Date: 20070117
  Receipt Date: 20070111
  Transmission Date: 20070707
  Serious: Yes (Hospitalization)
  Sender: FDA-Public Use
  Company Number: GB-GLAXOSMITHKLINE-B0454358A

PATIENT
  Age: 91 Year
  Sex: Female

DRUGS (12)
  1. DIGOXIN [Suspect]
     Indication: ATRIAL FIBRILLATION
     Route: 048
     Dates: start: 20061210, end: 20061210
  2. FLUOXETINE [Suspect]
     Indication: DEPRESSION
     Route: 048
     Dates: end: 20061208
  3. ADCAL D3 [Concomitant]
     Route: 065
  4. ASPIRIN [Concomitant]
     Route: 048
  5. BRICANYL [Concomitant]
     Dosage: 500MCG AS REQUIRED
     Route: 055
  6. CO-AMILOFRUSE [Concomitant]
     Indication: DIURETIC THERAPY
     Route: 048
  7. LEVOTHYROXINE SODIUM [Concomitant]
     Indication: THYROID DISORDER
     Dosage: 50MCG PER DAY
     Route: 048
  8. LOFEPRAMINE [Concomitant]
     Dosage: 70MG TWICE PER DAY
     Route: 065
     Dates: start: 20061208
  9. PARACETAMOL [Concomitant]
     Route: 065
  10. PULMICORT [Concomitant]
     Dosage: 100MCG AS REQUIRED
     Route: 055
  11. SENNA [Concomitant]
     Route: 065
  12. ZOPICLONE [Concomitant]
     Dosage: 7.5MG PER DAY
     Route: 065

REACTIONS (2)
  - CONFUSIONAL STATE [None]
  - UNRESPONSIVE TO STIMULI [None]
